FAERS Safety Report 5852133-0 (Version None)
Quarter: 2008Q3

REPORT INFORMATION
  Report Type: 
  Country: None (occurrence: None)
  Receive Date: 20080819
  Receipt Date: 20080819
  Transmission Date: 20090109
  Serious: Yes (Hospitalization)
  Sender: FDA-Public Use
  Company Number: None

PATIENT
  Age: 69 Year
  Sex: Male
  Weight: 82 kg

DRUGS (7)
  1. RISPERIDONE [Suspect]
     Indication: MENTAL DISORDER
     Dosage: 1MG QHS PO  (DURATION: CHRONIC)
     Route: 048
  2. LEXAPRO [Suspect]
     Indication: MENTAL DISORDER
     Dosage: 10MG DAILY PO  (DURATION: CHRONIC)
     Route: 048
  3. ASPIRIN [Concomitant]
  4. HYDROCHLOROTHIAZIDE [Concomitant]
  5. LISINOPRIL [Concomitant]
  6. ACTOS [Concomitant]
  7. TRAZODONE HCL [Concomitant]

REACTIONS (5)
  - BLOOD MAGNESIUM DECREASED [None]
  - BLOOD POTASSIUM DECREASED [None]
  - ELECTROCARDIOGRAM QT PROLONGED [None]
  - PALPITATIONS [None]
  - VENTRICULAR TACHYCARDIA [None]
